FAERS Safety Report 8676610 (Version 2)
Quarter: 2013Q4

REPORT INFORMATION
  Report Type: Spontaneous
  Country: US (occurrence: US)
  Receive Date: 20120723
  Receipt Date: 20131003
  Transmission Date: 20140711
  Serious: No
  Sender: FDA-Public Use
  Company Number: US-009507513-1206USA02415

PATIENT
  Age: 24 Year
  Sex: Male
  Weight: 83.9 kg

DRUGS (2)
  1. MAXALT [Suspect]
     Indication: MIGRAINE
     Dosage: UNK UNK, ONCE
     Route: 048
     Dates: start: 20120615, end: 20120615
  2. MAXALT [Suspect]
     Dosage: 10 MG, PRN
     Route: 048
     Dates: start: 20120606

REACTIONS (4)
  - Pain in jaw [Recovered/Resolved]
  - Chest pain [Recovered/Resolved]
  - Pain in jaw [Recovered/Resolved]
  - Chest discomfort [Recovered/Resolved]
